FAERS Safety Report 14055268 (Version 3)
Quarter: 2017Q4

REPORT INFORMATION
  Report Type: Spontaneous
  Country: FR (occurrence: FR)
  Receive Date: 20171006
  Receipt Date: 20171112
  Transmission Date: 20180321
  Serious: Yes (Death)
  Sender: FDA-Public Use
  Company Number: FR-CONCORDIA PHARMACEUTICALS INC.-E2B_00008412

PATIENT
  Age: 79 Year
  Sex: Male

DRUGS (6)
  1. CIPROFLOXACIN. [Interacting]
     Active Substance: CIPROFLOXACIN
  2. METHYLPREDNISOLONE. [Interacting]
     Active Substance: METHYLPREDNISOLONE
     Indication: VOMITING
  3. PREDNISOLONE. [Interacting]
     Active Substance: PREDNISOLONE
     Dosage: 20 MG/DAY TO 10 MG/DAY FOR 10 DAYS
  4. ERLOTINIB [Interacting]
     Active Substance: ERLOTINIB
  5. PIPERACILLIN/ TAZOBACTAM [Concomitant]
     Active Substance: PIPERACILLIN SODIUM\TAZOBACTAM SODIUM
  6. PREDNISOLONE. [Suspect]
     Active Substance: PREDNISOLONE
     Dosage: 20 MG/DAY TO 10 MG/DAY FOR 10 DAYS

REACTIONS (3)
  - Pneumoperitoneum [Fatal]
  - Drug interaction [Fatal]
  - Gastrointestinal perforation [Fatal]
